FAERS Safety Report 20071685 (Version 2)
Quarter: 2021Q4

REPORT INFORMATION
  Report Type: Other
  Country: US (occurrence: None)
  Receive Date: 20211116
  Receipt Date: 20211123
  Transmission Date: 20220303
  Serious: Yes (Death, Other)
  Sender: FDA-Public Use
  Company Number: US-ROCHE-2950692

PATIENT
  Sex: Male

DRUGS (1)
  1. OCREVUS [Suspect]
     Active Substance: OCRELIZUMAB
     Indication: Secondary progressive multiple sclerosis
     Dosage: SUBSEQUENT DOSE: 600 MG/ 3.5 HRS EVERY 6 MONTHS
     Route: 065
     Dates: start: 20201228

REACTIONS (5)
  - Septic shock [Fatal]
  - Respiratory failure [Fatal]
  - Urinary tract infection [Unknown]
  - Multiple sclerosis [Unknown]
  - General physical health deterioration [Unknown]
